FAERS Safety Report 6343351-6 (Version None)
Quarter: 2009Q3

REPORT INFORMATION
  Report Type: 
  Country: None (occurrence: None)
  Receive Date: 20090908
  Receipt Date: 20090828
  Transmission Date: 20100115
  Serious: Yes (Hospitalization, Other)
  Sender: FDA-Public Use
  Company Number: PHHY2009JP35264

PATIENT
  Age: 62 Year
  Sex: Female

DRUGS (4)
  1. SYMMETREL [Suspect]
     Indication: PARKINSON'S DISEASE
     Dosage: 300 MG
     Route: 048
     Dates: end: 20071001
  2. PARLODEL [Suspect]
     Indication: PARKINSON'S DISEASE
  3. PRAMIPEXOLE DIHYDROCHLORIDE [Concomitant]
     Indication: PARKINSON'S DISEASE
     Dosage: 1.5 MG
     Dates: end: 20071001
  4. CARBIDOPA AND LEVODOPA [Concomitant]
     Indication: PARKINSON'S DISEASE
     Dosage: 500 MG
     Dates: end: 20071001

REACTIONS (15)
  - BUNDLE BRANCH BLOCK LEFT [None]
  - CARDIOMYOPATHY [None]
  - CATHETERISATION CARDIAC [None]
  - CHEST DISCOMFORT [None]
  - DECREASED APPETITE [None]
  - DEPRESSED LEVEL OF CONSCIOUSNESS [None]
  - DRY SKIN [None]
  - MUSCLE RIGIDITY [None]
  - MYOCARDIAL ISCHAEMIA [None]
  - NASOPHARYNGITIS [None]
  - NEUROLEPTIC MALIGNANT SYNDROME [None]
  - PYREXIA [None]
  - TREMOR [None]
  - TROPONIN I INCREASED [None]
  - VENTRICULAR HYPOKINESIA [None]
